FAERS Safety Report 5638580-0 (Version None)
Quarter: 2008Q1

REPORT INFORMATION
  Report Type: 
  Country: None (occurrence: None)
  Receive Date: 20080226
  Receipt Date: 20070529
  Transmission Date: 20080703
  Serious: No
  Sender: FDA-Public Use
  Company Number: A0653247A

PATIENT
  Age: 51 Year
  Sex: Female

DRUGS (9)
  1. IMITREX [Suspect]
     Indication: MIGRAINE
     Dosage: 1INJ AS REQUIRED
     Route: 058
     Dates: start: 19990101
  2. METHADONE HCL [Concomitant]
  3. LORAZEPAM [Concomitant]
  4. OXYCODONE HCL [Concomitant]
  5. DIPHENOXYLATE HCL + ATROPINE SULFATE [Concomitant]
  6. PROMETRIUM [Concomitant]
  7. DILANTIN [Concomitant]
  8. CALCITRIOL [Concomitant]
  9. APAP/BUTALBITAL [Concomitant]

REACTIONS (1)
  - VARICOSE VEIN [None]
